FAERS Safety Report 6982563-5 (Version None)
Quarter: 2010Q3

REPORT INFORMATION
  Report Type: 
  Country: None (occurrence: None)
  Receive Date: 20100914
  Receipt Date: 20100225
  Transmission Date: 20110219
  Serious: No
  Sender: FDA-Public Use
  Company Number: US-PFIZER INC-2010004785

PATIENT
  Sex: Male

DRUGS (6)
  1. LYRICA [Suspect]
     Indication: NEURALGIA
     Dosage: 25 MG, 3X/DAY
     Route: 048
     Dates: start: 20090101
  2. LYRICA [Suspect]
     Dosage: 100 MG, UNK
     Route: 048
  3. OXYCONTIN [Concomitant]
     Dosage: UNK
  4. OXYCODONE [Concomitant]
     Dosage: UNK
  5. LISINOPRIL [Concomitant]
     Dosage: 20/25 MG
  6. VALIUM [Concomitant]
     Dosage: FREQUENCY: 2X/DAY,

REACTIONS (3)
  - NEURALGIA [None]
  - RASH [None]
  - SKIN LESION [None]
